FAERS Safety Report 11545639 (Version 2)
Quarter: 2015Q4

REPORT INFORMATION
  Report Type: Spontaneous
  Country: US (occurrence: US)
  Receive Date: 20150924
  Receipt Date: 20151002
  Transmission Date: 20160304
  Serious: Yes (Other)
  Sender: FDA-Public Use
  Company Number: US-PFIZER INC-2015312540

PATIENT
  Age: 45 Year
  Sex: Female
  Weight: 113 kg

DRUGS (4)
  1. VITAMIN B12 [Concomitant]
     Active Substance: CYANOCOBALAMIN
  2. NAPROXEN. [Concomitant]
     Active Substance: NAPROXEN
     Indication: MUSCULOSKELETAL PAIN
  3. LYRICA [Suspect]
     Active Substance: PREGABALIN
     Indication: NEUROPATHY PERIPHERAL
     Dosage: 3X/DAY (1 CAPSULE OF 150 MG IN THE MORNING, 1 IN THE AFTERNOON AND 2 AT BED TIME)
  4. NAPROXEN. [Concomitant]
     Active Substance: NAPROXEN
     Indication: INFLAMMATION
     Dosage: 500 MG, 2X/DAY

REACTIONS (6)
  - Depressed mood [Unknown]
  - Multiple sclerosis [Unknown]
  - Necrobiosis lipoidica diabeticorum [Unknown]
  - Condition aggravated [Unknown]
  - Diabetes mellitus [Unknown]
  - Weight increased [Unknown]
